FAERS Safety Report 4660645-0 (Version None)
Quarter: 2005Q2

REPORT INFORMATION
  Report Type: 
  Country: None (occurrence: None)
  Receive Date: 20050512
  Receipt Date: 20050126
  Transmission Date: 20051028
  Serious: Yes (Other)
  Sender: FDA-Public Use
  Company Number: PHEH2005US01329

PATIENT
  Age: 62 Year
  Sex: Female

DRUGS (6)
  1. ZOMETA [Suspect]
     Indication: METASTASES TO BONE
     Dosage: 4 MG, QMO
     Route: 042
     Dates: start: 20011126, end: 20011201
  2. AREDIA [Suspect]
     Indication: METASTASES TO BONE
     Dosage: 90 MG, QMO
     Route: 042
     Dates: start: 20030601, end: 20041022
  3. TAXOTERE [Concomitant]
  4. HERCEPTIN [Concomitant]
  5. NAVELBINE [Concomitant]
  6. CORTICOSTEROIDS [Concomitant]

REACTIONS (4)
  - ANAEMIA [None]
  - OSTEOMYELITIS [None]
  - OSTEONECROSIS [None]
  - PATHOLOGICAL FRACTURE [None]
